FAERS Safety Report 7984452-6 (Version None)
Quarter: 2011Q4

REPORT INFORMATION
  Report Type: 
  Country: None (occurrence: None)
  Receive Date: 20111216
  Receipt Date: 20111213
  Transmission Date: 20120403
  Serious: Yes (Death)
  Sender: FDA-Public Use
  Company Number: JP-ELI_LILLY_AND_COMPANY-JP201112001912

PATIENT
  Age: 95 Year
  Sex: Male
  Weight: 45.7 kg

DRUGS (3)
  1. TERIPARATIDE [Suspect]
     Indication: OSTEOPOROSIS
     Dosage: 20 UG, UNK
     Route: 058
     Dates: start: 20110706, end: 20110718
  2. AMARYL [Concomitant]
     Indication: DIABETES MELLITUS
     Dosage: UNK
     Dates: end: 20110719
  3. MINITRO [Concomitant]
     Indication: ANGINA PECTORIS
     Dosage: UNK
     Dates: end: 20110719

REACTIONS (1)
  - ANGINA PECTORIS [None]
